FAERS Safety Report 24105044 (Version 1)
Quarter: 2024Q3

REPORT INFORMATION
  Report Type: Spontaneous
  Country: FR (occurrence: None)
  Receive Date: 20240717
  Receipt Date: 20240717
  Transmission Date: 20241016
  Serious: Yes (Other)
  Sender: ASTRAZENECA
  Company Number: 2024A161412

PATIENT
  Age: 26 Year
  Sex: Male

DRUGS (11)
  1. QUETIAPINE [Suspect]
     Active Substance: QUETIAPINE
  2. DIAZEPAM [Suspect]
     Active Substance: DIAZEPAM
  3. ALCOHOL [Suspect]
     Active Substance: ALCOHOL
  4. COCAINE [Suspect]
     Active Substance: COCAINE
  5. COCAETHYLENE [Suspect]
     Active Substance: COCAETHYLENE
  6. CANNABIS SATIVA SEED\HERBALS [Suspect]
     Active Substance: CANNABIS SATIVA SEED\HERBALS
  7. CHLORZOXAZONE\DICLOFENAC SODIUM\TRAMADOL HYDROCHLORIDE [Suspect]
     Active Substance: CHLORZOXAZONE\DICLOFENAC SODIUM\TRAMADOL HYDROCHLORIDE
  8. OXAZEPAM [Suspect]
     Active Substance: OXAZEPAM
  9. LOXAPINE [Concomitant]
     Active Substance: LOXAPINE
     Dosage: 100.0MG UNKNOWN
  10. VALPROATE SODIUM [Concomitant]
     Active Substance: VALPROATE SODIUM
  11. AMISULPRIDE [Concomitant]
     Active Substance: AMISULPRIDE

REACTIONS (5)
  - Tachycardia [Unknown]
  - Hallucination, visual [Unknown]
  - Somnolence [Recovered/Resolved]
  - Substance use disorder [Unknown]
  - Drug use disorder [Unknown]

NARRATIVE: CASE EVENT DATE: 20240312
